FAERS Safety Report 6978921-5 (Version None)
Quarter: 2010Q3

REPORT INFORMATION
  Report Type: 
  Country: None (occurrence: None)
  Receive Date: 20100908
  Receipt Date: 20100827
  Transmission Date: 20110219
  Serious: Yes (Hospitalization)
  Sender: FDA-Public Use
  Company Number: 017950

PATIENT
  Sex: Female
  Weight: 52.2 kg

DRUGS (10)
  1. KEPPRA [Suspect]
     Indication: GRAND MAL CONVULSION
     Dosage: SEE IMAGE
     Route: 048
     Dates: start: 20100201
  2. KEPPRA [Suspect]
     Indication: PETIT MAL EPILEPSY
     Dosage: SEE IMAGE
     Route: 048
     Dates: start: 20100201
  3. KEPPRA [Suspect]
     Indication: GRAND MAL CONVULSION
     Dosage: SEE IMAGE
     Route: 048
     Dates: start: 20100324
  4. KEPPRA [Suspect]
     Indication: PETIT MAL EPILEPSY
     Dosage: SEE IMAGE
     Route: 048
     Dates: start: 20100324
  5. KEPPRA [Suspect]
     Indication: GRAND MAL CONVULSION
     Dosage: SEE IMAGE
     Route: 048
     Dates: start: 20100331
  6. KEPPRA [Suspect]
     Indication: PETIT MAL EPILEPSY
     Dosage: SEE IMAGE
     Route: 048
     Dates: start: 20100331
  7. KEPPRA [Suspect]
     Indication: GRAND MAL CONVULSION
     Dosage: SEE IMAGE
     Route: 048
     Dates: start: 20100826
  8. KEPPRA [Suspect]
     Indication: PETIT MAL EPILEPSY
     Dosage: SEE IMAGE
     Route: 048
     Dates: start: 20100826
  9. ZONEGRAN [Concomitant]
  10. PROZAC /00724401/ [Concomitant]

REACTIONS (5)
  - CONVULSION [None]
  - HAEMORRHAGE [None]
  - HEAD INJURY [None]
  - INAPPROPRIATE SCHEDULE OF DRUG ADMINISTRATION [None]
  - OPEN WOUND [None]
